FAERS Safety Report 7230752-7 (Version None)
Quarter: 2011Q1

REPORT INFORMATION
  Report Type: 
  Country: None (occurrence: None)
  Receive Date: 20110118
  Receipt Date: 20110111
  Transmission Date: 20110831
  Serious: Yes (Other)
  Sender: FDA-Public Use
  Company Number: US-JNJFOC-20110103231

PATIENT
  Age: 66 Year
  Sex: Female
  Weight: 170.1 kg

DRUGS (15)
  1. SYNTHROID [Concomitant]
     Indication: THYROID HORMONE REPLACEMENT THERAPY
     Route: 065
  2. PERCOCET [Concomitant]
     Indication: PAIN
     Route: 065
  3. COUMADIN [Interacting]
     Indication: ANTICOAGULANT THERAPY
     Dosage: DAILY, ALTERNATING 1MG, 2.5MG, AND 4MG
     Route: 065
  4. COUMADIN [Interacting]
     Dosage: DAILY, ALTERNATING 1MG, 2.5MG, AND 4MG
     Route: 065
  5. PROTONIX [Concomitant]
     Indication: GASTROOESOPHAGEAL REFLUX DISEASE
     Route: 065
  6. VALIUM [Concomitant]
     Indication: PRODUCT USED FOR UNKNOWN INDICATION
     Route: 065
  7. VITAMIN B-12 [Concomitant]
     Indication: VITAMIN SUPPLEMENTATION
     Route: 065
  8. TYLENOL (CAPLET) [Suspect]
     Route: 048
  9. TYLENOL (CAPLET) [Suspect]
     Indication: INSOMNIA
     Route: 048
  10. COUMADIN [Interacting]
     Dosage: DAILY, ALTERNATING 1MG, 2.5MG, AND 4MG
     Route: 065
  11. DIOVAN [Concomitant]
     Indication: HYPERTENSION
     Route: 065
  12. KLONOPIN [Concomitant]
     Indication: PRODUCT USED FOR UNKNOWN INDICATION
     Route: 065
  13. NEURONTIN [Concomitant]
     Indication: TREMOR
     Route: 065
  14. LIPITOR [Concomitant]
     Indication: BLOOD CHOLESTEROL
     Route: 065
  15. NITROGLYCERIN [Concomitant]
     Indication: CHEST PAIN
     Route: 065

REACTIONS (2)
  - DRUG INTERACTION [None]
  - GASTRIC HAEMORRHAGE [None]
